FAERS Safety Report 4530428-0 (Version None)
Quarter: 2004Q4

REPORT INFORMATION
  Report Type: 
  Country: None (occurrence: None)
  Receive Date: 20041215
  Receipt Date: 20041206
  Transmission Date: 20050328
  Serious: Yes (Other)
  Sender: FDA-Public Use
  Company Number: 2004-11-1497

PATIENT
  Age: 11 Year
  Sex: Male

DRUGS (1)
  1. CELESTAMINE TAB [Suspect]
     Dosage: 1 TAB ORAL
     Route: 048
     Dates: start: 19991101, end: 20030201

REACTIONS (1)
  - LIVER DISORDER [None]
